FAERS Safety Report 4514548-2 (Version None)
Quarter: 2004Q4

REPORT INFORMATION
  Report Type: 
  Country: None (occurrence: None)
  Receive Date: 20041126
  Receipt Date: 20041118
  Transmission Date: 20050328
  Serious: Yes (Congenital Anomaly)
  Sender: FDA-Public Use
  Company Number: STA-AE-04-MTX-581

PATIENT

DRUGS (1)
  1. METHOTREXATE [Suspect]
     Indication: RHEUMATOID ARTHRITIS

REACTIONS (3)
  - CONGENITAL ANOMALY [None]
  - TRANSMISSION OF DRUG VIA SEMEN [None]
  - TRISOMY 13 [None]
